FAERS Safety Report 4458099-2 (Version None)
Quarter: 2004Q3

REPORT INFORMATION
  Report Type: 
  Country: None (occurrence: None)
  Receive Date: 20040923
  Receipt Date: 20040910
  Transmission Date: 20050211
  Serious: Yes (Life-Threatening)
  Sender: FDA-Public Use
  Company Number: CHPA2004US03430

PATIENT
  Age: 89 Year
  Sex: Female
  Weight: 54.4 kg

DRUGS (1)
  1. BENEFIBER FIBER SUPPLEMENT SUGAR FREE (NCH) (GUAR GUM) POWDER [Suspect]
     Indication: NUTRITIONAL SUPPORT
     Dosage: 3 TSP QD, ORAL
     Route: 048
     Dates: start: 20040201, end: 20040712

REACTIONS (12)
  - ABDOMINAL DISTENSION [None]
  - ABNORMAL FAECES [None]
  - CHEST DISCOMFORT [None]
  - CHEST PAIN [None]
  - DYSPNOEA [None]
  - FEAR [None]
  - FEELING ABNORMAL [None]
  - INSOMNIA [None]
  - INTESTINAL OBSTRUCTION [None]
  - NAUSEA [None]
  - URTICARIA [None]
  - VOMITING [None]
